FAERS Safety Report 6648042-X (Version None)
Quarter: 2010Q1

REPORT INFORMATION
  Report Type: 
  Country: None (occurrence: None)
  Receive Date: 20100324
  Receipt Date: 20100310
  Transmission Date: 20100710
  Serious: Yes (Death, Hospitalization)
  Sender: FDA-Public Use
  Company Number: PHHY2010HU14615

PATIENT
  Sex: Male
  Weight: 120 kg

DRUGS (2)
  1. EXELON [Suspect]
     Indication: DEMENTIA ALZHEIMER'S TYPE
     Dosage: 9.5 MG, QD
     Route: 062
     Dates: start: 20090401
  2. ACENOCOUMAROL [Concomitant]
     Indication: ATRIAL FIBRILLATION

REACTIONS (4)
  - ARRHYTHMIA SUPRAVENTRICULAR [None]
  - CEREBRAL ARTERY EMBOLISM [None]
  - CEREBROVASCULAR ACCIDENT [None]
  - INTERNATIONAL NORMALISED RATIO INCREASED [None]
